FAERS Safety Report 9882813 (Version 1)
Quarter: 2014Q1

REPORT INFORMATION
  Report Type: Spontaneous
  Country: US (occurrence: US)
  Receive Date: 20140207
  Receipt Date: 20140207
  Transmission Date: 20141002
  Serious: Yes (Hospitalization, Other)
  Sender: FDA-Public Use
  Company Number: US-RB-063151-14

PATIENT
  Age: 30 Year
  Sex: Female

DRUGS (3)
  1. SUBOXONE TABLET [Suspect]
     Indication: PRODUCT USED FOR UNKNOWN INDICATION
     Dosage: DOSING DETAILS UNKNOWN
     Route: 065
  2. SUBOXONE FILM [Suspect]
     Indication: PAIN
     Dosage: SUBOXONE FILM
     Route: 060
     Dates: start: 201311, end: 201311
  3. SUBOXONE FILM [Suspect]
     Dosage: SUBOXONE FILM
     Route: 060

REACTIONS (7)
  - Migraine [Unknown]
  - Off label use [Not Recovered/Not Resolved]
  - Drug withdrawal syndrome [Recovered/Resolved]
  - Self injurious behaviour [Recovered/Resolved]
  - Suicidal behaviour [Recovered/Resolved]
  - Homicidal ideation [Recovered/Resolved]
  - Headache [Unknown]
